FAERS Safety Report 7524492-4 (Version None)
Quarter: 2011Q2

REPORT INFORMATION
  Report Type: 
  Country: None (occurrence: None)
  Receive Date: 20110601
  Receipt Date: 20110601
  Transmission Date: 20111010
  Serious: Yes (Hospitalization)
  Sender: FDA-Public Use
  Company Number: None

PATIENT
  Age: 24 Year
  Sex: Female
  Weight: 76.9 kg

DRUGS (2)
  1. RELPAX [Suspect]
     Indication: MIGRAINE
     Dosage: RELPAX 40 MG NOW PO
     Route: 048
     Dates: start: 20110526
  2. HYDROCODONE/PROMETHAZINE [Concomitant]

REACTIONS (3)
  - SEROTONIN SYNDROME [None]
  - NEUROLEPTIC MALIGNANT SYNDROME [None]
  - NO REACTION ON PREVIOUS EXPOSURE TO DRUG [None]
